FAERS Safety Report 10044119 (Version 2)
Quarter: 2014Q1

REPORT INFORMATION
  Report Type: Report from Study
  Country: CA (occurrence: CA)
  Receive Date: 20140328
  Receipt Date: 20140328
  Transmission Date: 20141002
  Serious: Yes (Other)
  Sender: FDA-Public Use
  Company Number: CA-JNJFOC-20140306321

PATIENT
  Age: 51 Year
  Sex: Female
  Weight: 55 kg

DRUGS (6)
  1. REMICADE [Suspect]
     Indication: CROHN^S DISEASE
     Route: 042
     Dates: start: 20140310
  2. REMICADE [Suspect]
     Indication: CROHN^S DISEASE
     Route: 042
     Dates: start: 20090909
  3. HORMONE THERAPY [Concomitant]
     Route: 065
  4. PREVACID [Concomitant]
     Route: 065
  5. VITAMIN B 12 [Concomitant]
     Route: 065
  6. MIN-OVRAL [Concomitant]
     Route: 065

REACTIONS (3)
  - Biliary dilatation [Not Recovered/Not Resolved]
  - Crohn^s disease [Not Recovered/Not Resolved]
  - Weight decreased [Not Recovered/Not Resolved]
